FAERS Safety Report 9736113 (Version 2)
Quarter: 2013Q4

REPORT INFORMATION
  Report Type: Spontaneous
  Country: MX (occurrence: MX)
  Receive Date: 20131206
  Receipt Date: 20131220
  Transmission Date: 20140711
  Serious: Yes (Hospitalization)
  Sender: FDA-Public Use
  Company Number: MX-ABBVIE-13P-107-1176400-00

PATIENT
  Age: 58 Year
  Sex: Male

DRUGS (5)
  1. HUMIRA [Suspect]
     Indication: ANKYLOSING SPONDYLITIS
     Route: 058
     Dates: start: 2011
  2. SULFASALAZINE [Concomitant]
     Indication: ANKYLOSING SPONDYLITIS
     Dosage: 2X2
     Route: 048
  3. INDOMETACINE [Concomitant]
     Indication: ANKYLOSING SPONDYLITIS
     Dosage: 1X3
     Route: 048
  4. PARACETAMOL [Concomitant]
     Indication: ANKYLOSING SPONDYLITIS
     Dosage: 1X3
     Route: 048
  5. OMEPRAZOLE [Concomitant]
     Indication: ANKYLOSING SPONDYLITIS
     Dosage: 1X1
     Route: 048

REACTIONS (3)
  - Angina pectoris [Unknown]
  - Pulmonary tuberculosis [Unknown]
  - Lower respiratory tract infection [Unknown]
